FAERS Safety Report 19546623 (Version 1)
Quarter: 2021Q3

REPORT INFORMATION
  Report Type: Spontaneous
  Country: JP (occurrence: JP)
  Receive Date: 20210715
  Receipt Date: 20210715
  Transmission Date: 20211014
  Serious: Yes (Death, Hospitalization)
  Sender: FDA-Public Use
  Company Number: JP-JNJFOC-20210728417

PATIENT
  Age: 8 Decade
  Sex: Male

DRUGS (3)
  1. COLCHICINE. [Concomitant]
     Active Substance: COLCHICINE
     Indication: SMALL INTESTINAL ULCER HAEMORRHAGE
     Route: 048
  2. REMICADE [Suspect]
     Active Substance: INFLIXIMAB
     Indication: SMALL INTESTINAL ULCER HAEMORRHAGE
     Route: 042
  3. REBAMIPIDE [Concomitant]
     Active Substance: REBAMIPIDE
     Indication: SMALL INTESTINAL ULCER HAEMORRHAGE
     Route: 048

REACTIONS (2)
  - Opportunistic infection [Fatal]
  - Failure to anastomose [Unknown]
